FAERS Safety Report 8127922-2 (Version None)
Quarter: 2011Q4

REPORT INFORMATION
  Report Type: 
  Country: None (occurrence: None)
  Receive Date: 20111227
  Receipt Date: 20110920
  Transmission Date: 20120403
  Serious: No
  Sender: FDA-Public Use
  Company Number: PHEH2011US03608

PATIENT
  Age: 71 Year
  Sex: Female
  Weight: 99.8 kg

DRUGS (5)
  1. CYMBALTA [Concomitant]
  2. GILENYA [Suspect]
     Indication: MULTIPLE SCLEROSIS
     Dosage: 0.5 MG, QD, ORAL
     Route: 048
     Dates: start: 20110801, end: 20110901
  3. AMLODIPINE [Concomitant]
  4. PREMARIN [Concomitant]
  5. DIOVAN [Concomitant]

REACTIONS (3)
  - COUGH [None]
  - FLUID RETENTION [None]
  - HEADACHE [None]
